FAERS Safety Report 8012025-8 (Version None)
Quarter: 2011Q4

REPORT INFORMATION
  Report Type: 
  Country: None (occurrence: None)
  Receive Date: 20111228
  Receipt Date: 20111214
  Transmission Date: 20120403
  Serious: Yes (Other)
  Sender: FDA-Public Use
  Company Number: IT-GLAXOSMITHKLINE-B0770555A

PATIENT
  Sex: Male

DRUGS (7)
  1. ZOMETA [Concomitant]
     Route: 065
  2. BACTRIM [Concomitant]
     Route: 065
  3. ACYCLOVIR [Concomitant]
     Route: 065
  4. PREDNISONE TAB [Suspect]
     Indication: PRODUCT USED FOR UNKNOWN INDICATION
     Dosage: 5MG CYCLIC
     Route: 048
  5. VELCADE [Suspect]
     Indication: PRODUCT USED FOR UNKNOWN INDICATION
     Dosage: 2.2MG CYCLIC
     Route: 065
     Dates: start: 20110727, end: 20111020
  6. RAMIPRIL [Concomitant]
     Route: 065
  7. ALKERAN [Suspect]
     Indication: MULTIPLE MYELOMA
     Dosage: 14MG PER DAY
     Route: 048
     Dates: start: 20111015

REACTIONS (5)
  - HYPOTENSION [None]
  - DECREASED APPETITE [None]
  - THROMBOCYTOPENIA [None]
  - ASTHENIA [None]
  - BRADYCARDIA [None]
